FAERS Safety Report 6714564-6 (Version None)
Quarter: 2010Q2

REPORT INFORMATION
  Report Type: 
  Country: None (occurrence: None)
  Receive Date: 20100506
  Receipt Date: 20100422
  Transmission Date: 20101027
  Serious: Yes (Hospitalization)
  Sender: FDA-Public Use
  Company Number: DE-MYLANLABS-2009S1004729

PATIENT
  Age: 86 Year
  Sex: Female
  Weight: 58 kg

DRUGS (6)
  1. OMEPRAZOLE [Interacting]
     Indication: PROPHYLAXIS AGAINST GASTROINTESTINAL ULCER
     Route: 048
     Dates: start: 20070701
  2. PIPERACILLIN AND TAZOBACTAM [Suspect]
     Indication: INFECTION PROPHYLAXIS
     Dosage: 3X4 MG PIPERACILLIN, 3X0.5 MG TAZOBACTAM
     Route: 042
     Dates: start: 20081219, end: 20081231
  3. CLEXANE [Concomitant]
     Indication: THROMBOSIS PROPHYLAXIS
     Route: 058
     Dates: start: 20081219
  4. ARCOXIA [Concomitant]
     Indication: POSTOPERATIVE ANALGESIA
     Route: 048
     Dates: start: 20081219, end: 20090202
  5. RISPERDAL [Concomitant]
     Indication: VASCULAR DEMENTIA
     Dosage: 0-0-0-0.5-2 MG /TAG
     Route: 048
     Dates: start: 20040101
  6. FERRO SANOL COMP /01493401/ [Concomitant]
     Indication: ANAEMIA POSTOPERATIVE
     Route: 048
     Dates: start: 20081222, end: 20090202

REACTIONS (2)
  - CLOSTRIDIUM DIFFICILE COLITIS [None]
  - DRUG INTERACTION [None]
